FAERS Safety Report 5504991-7 (Version None)
Quarter: 2007Q4

REPORT INFORMATION
  Report Type: 
  Country: None (occurrence: None)
  Receive Date: 20071031
  Receipt Date: 20071019
  Transmission Date: 20080405
  Serious: No
  Sender: FDA-Public Use
  Company Number: TPA2007A02149

PATIENT
  Age: 45 Year
  Sex: Male
  Weight: 122.4712 kg

DRUGS (6)
  1. ROZEREM [Suspect]
     Indication: INSOMNIA
     Dosage: 8 MG, QHS, PER ORAL
     Route: 048
     Dates: start: 20070925, end: 20070927
  2. ROZEREM [Suspect]
     Indication: INSOMNIA
     Dosage: 8 MG, QHS, PER ORAL
     Route: 048
     Dates: start: 20070928, end: 20071019
  3. CARDIZEM [Concomitant]
  4. ZYRTEC [Concomitant]
  5. ANDROGEL [Concomitant]
  6. ASPIRIN [Concomitant]

REACTIONS (4)
  - FEELING ABNORMAL [None]
  - HEART RATE INCREASED [None]
  - INITIAL INSOMNIA [None]
  - POOR QUALITY SLEEP [None]
